FAERS Safety Report 10925467 (Version 5)
Quarter: 2015Q2

REPORT INFORMATION
  Report Type: Report from Study
  Country: US (occurrence: US)
  Receive Date: 20150318
  Receipt Date: 20150422
  Transmission Date: 20150821
  Serious: Yes (Hospitalization)
  Sender: FDA-Public Use
  Company Number: US-SANOFI-AVENTIS-2013SA085626

PATIENT
  Age: 39 Year
  Sex: Male

DRUGS (4)
  1. AUBAGIO [Suspect]
     Active Substance: TERIFLUNOMIDE
     Indication: MULTIPLE SCLEROSIS
     Dosage: PILL
     Route: 048
     Dates: start: 201501, end: 20150117
  2. AUBAGIO [Suspect]
     Active Substance: TERIFLUNOMIDE
     Indication: MULTIPLE SCLEROSIS
     Dosage: PILL
     Route: 048
     Dates: start: 20130803, end: 20140120
  3. AUBAGIO [Suspect]
     Active Substance: TERIFLUNOMIDE
     Indication: MULTIPLE SCLEROSIS
     Dosage: PILL
     Route: 048
     Dates: start: 2015, end: 201503
  4. AUBAGIO [Suspect]
     Active Substance: TERIFLUNOMIDE
     Indication: MULTIPLE SCLEROSIS
     Dosage: PILL
     Route: 048
     Dates: start: 201504

REACTIONS (13)
  - Unevaluable event [Unknown]
  - Migraine [Recovered/Resolved]
  - Influenza [Unknown]
  - Memory impairment [Unknown]
  - Muscle twitching [Unknown]
  - Insomnia [Unknown]
  - Stress [Unknown]
  - Alopecia [Unknown]
  - Abasia [Recovering/Resolving]
  - Pain in extremity [Unknown]
  - Nuclear magnetic resonance imaging abnormal [Unknown]
  - Dysstasia [Unknown]
  - Headache [Not Recovered/Not Resolved]

NARRATIVE: CASE EVENT DATE: 201412
